FAERS Safety Report 5670547-9 (Version None)
Quarter: 2008Q1

REPORT INFORMATION
  Report Type: 
  Country: None (occurrence: None)
  Receive Date: 20080318
  Receipt Date: 20080310
  Transmission Date: 20080703
  Serious: Yes (Other)
  Sender: FDA-Public Use
  Company Number: GB-SOLVAY-00208001085

PATIENT
  Sex: Male

DRUGS (2)
  1. COVERSYL [Suspect]
     Indication: HYPERTENSION
     Dosage: DAILY DOSE: 2 MILLIGRAM(S)
     Route: 048
  2. COVERSYL [Suspect]
     Dosage: DAILY DOSE: 4 MILLIGRAM(S)
     Route: 048

REACTIONS (4)
  - CONJUNCTIVITIS [None]
  - DRY EYE [None]
  - RETINAL DETACHMENT [None]
  - VITREOUS DETACHMENT [None]
